FAERS Safety Report 19056069 (Version 1)
Quarter: 2021Q1

REPORT INFORMATION
  Report Type: Spontaneous
  Country: US (occurrence: US)
  Receive Date: 20210324
  Receipt Date: 20210324
  Transmission Date: 20210420
  Serious: Yes (Death)
  Sender: FDA-Public Use
  Company Number: None

PATIENT
  Age: 71 Year
  Sex: Male

DRUGS (1)
  1. ADEMPAS [Suspect]
     Active Substance: RIOCIGUAT
     Indication: PULMONARY HYPERTENSION
     Route: 048
     Dates: start: 20160928, end: 20210323

REACTIONS (6)
  - Respiratory failure [None]
  - Hypoxia [None]
  - Acute kidney injury [None]
  - Hypotension [None]
  - General physical health deterioration [None]
  - Pseudomonal bacteraemia [None]

NARRATIVE: CASE EVENT DATE: 20210323
